FAERS Safety Report 22265556 (Version 1)
Quarter: 2023Q2

REPORT INFORMATION
  Report Type: Spontaneous
  Country: US (occurrence: US)
  Receive Date: 20230428
  Receipt Date: 20230428
  Transmission Date: 20230722
  Serious: Yes (Hospitalization)
  Sender: FDA-Public Use
  Company Number: US-PFIZER INC-202200354844

PATIENT
  Age: 93 Year
  Sex: Female
  Weight: 62.6 kg

DRUGS (2)
  1. VYNDAMAX [Suspect]
     Active Substance: TAFAMIDIS
     Indication: Cardiac amyloidosis
     Dosage: 61 MG, DAILY
     Route: 048
  2. BISOPROLOL FUMARATE [Concomitant]
     Active Substance: BISOPROLOL FUMARATE
     Indication: Heart rate abnormal
     Dosage: 5 MG, 1X/DAY (ONCE DAILY BY MOUTH IN THE EVENING BEFORE BED)
     Route: 048

REACTIONS (2)
  - Peripheral swelling [Unknown]
  - Dyspnoea [Unknown]
